FAERS Safety Report 23803775 (Version 1)
Quarter: 2024Q2

REPORT INFORMATION
  Report Type: Spontaneous
  Country: GB (occurrence: GB)
  Receive Date: 20240501
  Receipt Date: 20240501
  Transmission Date: 20240715
  Serious: Yes (Disabling)
  Sender: FDA-Public Use
  Company Number: None

PATIENT
  Age: 16 Year
  Sex: Female
  Weight: 48 kg

DRUGS (1)
  1. TRIMETHOPRIM [Suspect]
     Active Substance: TRIMETHOPRIM
     Indication: Acne
     Dosage: DURATION: 16 DAYS
     Route: 048
     Dates: start: 20240405, end: 20240421

REACTIONS (11)
  - Nightmare [Not Recovered/Not Resolved]
  - Fatigue [Recovering/Resolving]
  - Dyskinesia [Recovered/Resolved]
  - Dyspnoea [Recovering/Resolving]
  - Abnormal behaviour [Recovering/Resolving]
  - Insomnia [Not Recovered/Not Resolved]
  - Nausea [Recovered/Resolved]
  - Palpitations [Recovered/Resolved]
  - Anxiety [Recovering/Resolving]
  - Headache [Recovered/Resolved]
  - Panic attack [Recovered/Resolved]

NARRATIVE: CASE EVENT DATE: 20240405
